FAERS Safety Report 20044145 (Version 3)
Quarter: 2022Q1

REPORT INFORMATION
  Report Type: Report from Study
  Country: US (occurrence: US)
  Receive Date: 20211108
  Receipt Date: 20220106
  Transmission Date: 20220424
  Serious: Yes (Death, Hospitalization, Other)
  Sender: FDA-Public Use
  Company Number: US-INSMED, INC.-2021-09787-US

PATIENT
  Sex: Male

DRUGS (3)
  1. ARIKAYCE [Suspect]
     Active Substance: AMIKACIN
     Indication: Mycobacterium avium complex infection
     Dosage: 590 MILLIGRAM, QD
     Route: 055
     Dates: start: 20210921, end: 202110
  2. ARIKAYCE [Suspect]
     Active Substance: AMIKACIN
     Dosage: 590 MILLIGRAM, QD
     Route: 055
     Dates: start: 2021, end: 2021
  3. OXYGEN [Concomitant]
     Active Substance: OXYGEN
     Indication: Product used for unknown indication
     Dosage: UNK LITER
     Route: 065

REACTIONS (10)
  - Oxygen therapy [Recovering/Resolving]
  - Death [Fatal]
  - Seizure [Unknown]
  - Lung disorder [Unknown]
  - Cough [Recovering/Resolving]
  - Asthenia [Recovering/Resolving]
  - Dyspnoea [Not Recovered/Not Resolved]
  - Hospice care [Unknown]
  - Muscle spasms [Unknown]
  - Therapy interrupted [Unknown]

NARRATIVE: CASE EVENT DATE: 20210101
